FAERS Safety Report 8508473-X (Version None)
Quarter: 2012Q3

REPORT INFORMATION
  Report Type: 
  Country: None (occurrence: None)
  Receive Date: 20120713
  Receipt Date: 20120706
  Transmission Date: 20120928
  Serious: Yes (Hospitalization, Disabling)
  Sender: FDA-Public Use
  Company Number: US-BAYER-2011-027449

PATIENT
  Age: 41 Year
  Sex: Female
  Weight: 68.027 kg

DRUGS (8)
  1. OXYCODONE HCL [Concomitant]
     Indication: PAIN
     Dosage: 5 MG, 1 Q6H
     Dates: start: 20060823
  2. IBUPROFEN [Concomitant]
     Dosage: 600 MG, TID
     Route: 048
     Dates: start: 20060823
  3. MOTRIN [Concomitant]
     Dosage: UNK
     Dates: start: 20060929
  4. PHENERGAN HCL [Concomitant]
     Indication: NAUSEA
     Dosage: 25 MG, 1 Q6H PRN
     Dates: start: 20060823
  5. YAZ [Suspect]
     Indication: CONTRACEPTION
     Dosage: UNK
     Dates: start: 20051101, end: 20051201
  6. DEMEROL [Concomitant]
     Indication: PAIN
     Dosage: 50 MG, 2 Q (EVERY) 3-4 H HOURS PRN
     Route: 048
     Dates: start: 20060823
  7. PHENERGAN HCL [Concomitant]
     Indication: VOMITING
  8. FLEXERIL [Concomitant]
     Dosage: UNK
     Dates: start: 20060929

REACTIONS (8)
  - ENTEROCUTANEOUS FISTULA [None]
  - INJURY [None]
  - EMOTIONAL DISTRESS [None]
  - PAIN [None]
  - ANXIETY [None]
  - ANHEDONIA [None]
  - DEEP VEIN THROMBOSIS [None]
  - GENERAL PHYSICAL HEALTH DETERIORATION [None]
